FAERS Safety Report 4269479-2 (Version None)
Quarter: 2004Q1

REPORT INFORMATION
  Report Type: 
  Country: None (occurrence: None)
  Receive Date: 20040112
  Receipt Date: 20031215
  Transmission Date: 20041129
  Serious: No
  Sender: FDA-Public Use
  Company Number: 2003AP03122

PATIENT
  Age: 54 Year
  Sex: Female

DRUGS (12)
  1. IRESSA [Suspect]
     Indication: LUNG ADENOCARCINOMA
     Dosage: 250 MG DAILY PO
     Route: 048
     Dates: start: 20030813, end: 20030824
  2. IRESSA [Suspect]
     Indication: LUNG ADENOCARCINOMA
     Dosage: 250 MG DAILY PO
     Route: 048
     Dates: start: 20031002
  3. TAXOL [Concomitant]
  4. CARBOPLATIN [Concomitant]
  5. RADIATION THERAPY [Concomitant]
  6. ADONA [Concomitant]
  7. TRANSAMIN [Concomitant]
  8. CLARITH [Concomitant]
  9. GASTER OD [Concomitant]
  10. MALFA [Concomitant]
  11. BROCIN [Concomitant]
  12. DIPYRIDAMOLE [Concomitant]

REACTIONS (6)
  - CONDITION AGGRAVATED [None]
  - HAEMOPTYSIS [None]
  - INFECTION [None]
  - INTERSTITIAL LUNG DISEASE [None]
  - PLEURAL EFFUSION [None]
  - PULMONARY ALVEOLAR HAEMORRHAGE [None]
